FAERS Safety Report 6241030-7 (Version None)
Quarter: 2009Q2

REPORT INFORMATION
  Report Type: 
  Country: None (occurrence: None)
  Receive Date: 20090619
  Receipt Date: 20090605
  Transmission Date: 20091009
  Serious: Yes (Death)
  Sender: FDA-Public Use
  Company Number: KADN20090044

PATIENT
  Age: 40 Year
  Sex: Male

DRUGS (3)
  1. MORPHINE [Suspect]
     Indication: DRUG USE FOR UNKNOWN INDICATION
     Dosage: INGESTION
     Dates: end: 20070101
  2. CARISOPRODOL [Suspect]
     Indication: DRUG USE FOR UNKNOWN INDICATION
     Dosage: INGESTION
     Dates: end: 20070101
  3. MEPROBAMATE [Concomitant]

REACTIONS (2)
  - DRUG TOXICITY [None]
  - PULMONARY OEDEMA [None]
